FAERS Safety Report 10381975 (Version 1)
Quarter: 2014Q1

REPORT INFORMATION
  Report Type: Spontaneous
  Country: US (occurrence: None)
  Receive Date: 20140306
  Receipt Date: 20140306
  Transmission Date: 20141002
  Serious: Yes (Other)
  Sender: FDA-Public Use
  Company Number: 163-21880-13112522

PATIENT
  Age: 58 Year
  Sex: Female
  Weight: 76.2 kg

DRUGS (9)
  1. REVLIMID [Suspect]
     Indication: PLASMA CELL MYELOMA
     Route: 048
     Dates: start: 20121116
  2. DECADRON (DEXAMETHASONE) [Concomitant]
  3. XANAX (ALPRAZOLAM) [Concomitant]
  4. ZOLOFT (SERTRALINE HYDROCHLORIDE) [Concomitant]
  5. SYNTHROID (LEVOTHYROXINE SODIUM) [Concomitant]
  6. METFORMIN HCL (METFORMIN HYDROCHLORIDE) [Concomitant]
  7. CRESTOR (ROSUVASTATIN) [Concomitant]
  8. FOLIC ACID [Concomitant]
  9. POTASSIUM BICARBONATE [Concomitant]

REACTIONS (3)
  - Psychomotor hyperactivity [None]
  - Insomnia [None]
  - Night sweats [None]
